FAERS Safety Report 6970098-5 (Version None)
Quarter: 2010Q3

REPORT INFORMATION
  Report Type: 
  Country: None (occurrence: None)
  Receive Date: 20100823
  Receipt Date: 20100406
  Transmission Date: 20110219
  Serious: No
  Sender: FDA-Public Use
  Company Number: 009804

PATIENT
  Sex: Male
  Weight: 83.9 kg

DRUGS (3)
  1. CIMZIA [Suspect]
     Indication: CROHN'S DISEASE
     Dosage: (2 SYRINGES SUBCUTANEOUS)
     Route: 058
     Dates: start: 20100326
  2. MESALAMINE [Concomitant]
  3. ROWASA [Concomitant]

REACTIONS (2)
  - INJECTION SITE REACTION [None]
  - RECTAL HAEMORRHAGE [None]
